FAERS Safety Report 7514629-5 (Version None)
Quarter: 2011Q2

REPORT INFORMATION
  Report Type: 
  Country: None (occurrence: None)
  Receive Date: 20110526
  Receipt Date: 20110526
  Transmission Date: 20111010
  Serious: Yes (Life-Threatening, Hospitalization)
  Sender: FDA-Public Use
  Company Number: None

PATIENT
  Age: 53 Year
  Sex: Female
  Weight: 63.5036 kg

DRUGS (1)
  1. AZITHROMYCIN [Suspect]
     Indication: PHARYNGITIS
     Dosage: 2 TABLETS FIRST DOSE MOUTH
     Route: 048
     Dates: start: 20110411

REACTIONS (12)
  - DEAFNESS UNILATERAL [None]
  - DYSARTHRIA [None]
  - MOVEMENT DISORDER [None]
  - FEELING ABNORMAL [None]
  - EAR PAIN [None]
  - DIZZINESS [None]
  - EAR DISCOMFORT [None]
  - CHEST PAIN [None]
  - ABDOMINAL PAIN UPPER [None]
  - HEART RATE INCREASED [None]
  - CHILLS [None]
  - HEADACHE [None]
